FAERS Safety Report 6640486-5 (Version None)
Quarter: 2010Q1

REPORT INFORMATION
  Report Type: 
  Country: None (occurrence: None)
  Receive Date: 20100318
  Receipt Date: 20100308
  Transmission Date: 20100710
  Serious: Yes (Death)
  Sender: FDA-Public Use
  Company Number: IN-PFIZER INC-2010030155

PATIENT
  Age: 52 Year
  Sex: Male

DRUGS (10)
  1. SUTENT [Suspect]
     Indication: METASTATIC RENAL CELL CARCINOMA
     Dosage: 50 MG, 1X/DAY, 4WEEKS ON /2 WEEEKS OFF
     Route: 048
  2. CONTRAMAL [Concomitant]
     Dosage: UNK
  3. DICLOFENAC SODIUM [Concomitant]
     Dosage: UNK
  4. RANTAC [Concomitant]
     Dosage: UNK
  5. VITAMIN B COMPLEX CAP [Concomitant]
     Dosage: UNK
  6. MORPHINE [Concomitant]
     Dosage: 10 MG, 3X/DAY
  7. DULCOLAX [Concomitant]
     Dosage: 2 DF, 1X/DAY
  8. METOCLOPRAMIDE [Concomitant]
     Dosage: UNK
  9. ATIVAN [Concomitant]
     Dosage: UNK
  10. BISACODYL [Concomitant]

REACTIONS (1)
  - DEATH [None]
